FAERS Safety Report 17697741 (Version 1)
Quarter: 2020Q2

REPORT INFORMATION
  Report Type: Spontaneous
  Country: IT (occurrence: IT)
  Receive Date: 20200423
  Receipt Date: 20200423
  Transmission Date: 20200714
  Serious: Yes (Life-Threatening, Other)
  Sender: FDA-Public Use
  Company Number: IT-MACLEODS PHARMACEUTICALS US LTD-MAC2020026223

PATIENT

DRUGS (4)
  1. LIDOCAINE. [Suspect]
     Active Substance: LIDOCAINE
     Indication: DENTAL OPERATION
     Dosage: UNK, VAGINAL CAPSULE
     Route: 061
  2. LIDOCAINE. [Suspect]
     Active Substance: LIDOCAINE
     Indication: URINARY TRACT INFECTION
     Dosage: UNK, CEFTRIAXONE+SOLVENT WITH LIDOCAINE 1% ADMINISTRATION, INJECTION
     Route: 065
  3. CEFTRIAXONE. [Suspect]
     Active Substance: CEFTRIAXONE
     Indication: PRODUCT USED FOR UNKNOWN INDICATION
     Dosage: UNK,CEFTRIAXONE+SOLVENT WITH LIDOCAINE 1% ADMINISTRATION, CEFTRIAXONE ROCHE
     Route: 065
  4. MICONAZOLE. [Concomitant]
     Active Substance: MICONAZOLE
     Indication: URINARY TRACT INFECTION
     Dosage: UNK, VAGINAL CAPSULE
     Route: 065

REACTIONS (5)
  - Vulval eczema [Unknown]
  - Drug hypersensitivity [Unknown]
  - Asthma [Unknown]
  - Lymphadenopathy [Unknown]
  - Angioedema [Unknown]
